FAERS Safety Report 5474144-X (Version None)
Quarter: 2007Q3

REPORT INFORMATION
  Report Type: 
  Country: None (occurrence: None)
  Receive Date: 20070830
  Receipt Date: 20070103
  Transmission Date: 20080115
  Serious: Yes (Hospitalization)
  Sender: FDA-Public Use
  Company Number: 200710088US

PATIENT
  Age: 84 Year
  Sex: Male

DRUGS (2)
  1. LASIX [Suspect]
     Dates: start: 19970101, end: 20061016
  2. UNSPECIFIED CLINICAL TRIAL DRUG [Suspect]

REACTIONS (1)
  - DEHYDRATION [None]
